FAERS Safety Report 7768971-3 (Version None)
Quarter: 2011Q3

REPORT INFORMATION
  Report Type: 
  Country: None (occurrence: None)
  Receive Date: 20110922
  Receipt Date: 20110307
  Transmission Date: 20111222
  Serious: No
  Sender: FDA-Public Use
  Company Number: US-ASTRAZENECA-2011SE12774

PATIENT
  Age: 39 Year
  Sex: Female
  Weight: 108.9 kg

DRUGS (7)
  1. LERICA [Concomitant]
  2. XANEX [Concomitant]
  3. PERCOCET [Concomitant]
  4. CELEXA [Concomitant]
  5. SEROQUEL [Suspect]
     Indication: BIPOLAR DISORDER
     Route: 048
  6. LAMICTAL [Concomitant]
  7. SEROQUEL [Suspect]
     Route: 048

REACTIONS (5)
  - MOOD ALTERED [None]
  - DRUG DOSE OMISSION [None]
  - NERVOUSNESS [None]
  - INSOMNIA [None]
  - DRUG INEFFECTIVE [None]
